FAERS Safety Report 4851387-7 (Version None)
Quarter: 2005Q4

REPORT INFORMATION
  Report Type: 
  Country: None (occurrence: None)
  Receive Date: 20051208
  Receipt Date: 20051124
  Transmission Date: 20060501
  Serious: Yes (Hospitalization)
  Sender: FDA-Public Use
  Company Number: 2005BI021475

PATIENT
  Age: 63 Year
  Sex: Male
  Weight: 80 kg

DRUGS (8)
  1. ZEVALIN [Suspect]
     Indication: MANTLE CELL LYMPHOMA
     Dosage: 1X; IV
     Route: 042
     Dates: start: 20050812, end: 20050812
  2. ZEVALIN [Suspect]
     Indication: MANTLE CELL LYMPHOMA
     Dosage: 1X; IV
     Route: 042
     Dates: start: 20050819, end: 20050819
  3. RITUXIMAB [Concomitant]
  4. MABTHERA [Concomitant]
  5. CYCLOPHOSPHAMIDE [Concomitant]
  6. ADRIAMYCIN [Concomitant]
  7. VINCRISTINE [Concomitant]
  8. PREDNISONE TAB [Concomitant]

REACTIONS (4)
  - COLON CANCER [None]
  - METASTASES TO LYMPH NODES [None]
  - METASTASES TO PERITONEUM [None]
  - SUBILEUS [None]
